FAERS Safety Report 5888504-6 (Version None)
Quarter: 2008Q3

REPORT INFORMATION
  Report Type: 
  Country: None (occurrence: None)
  Receive Date: 20080918
  Receipt Date: 20080909
  Transmission Date: 20090109
  Serious: Yes (Other)
  Sender: FDA-Public Use
  Company Number: US-ABBOTT-08P-163-0475682-00

PATIENT
  Sex: Female
  Weight: 97.61 kg

DRUGS (16)
  1. HUMIRA [Suspect]
     Indication: RHEUMATOID ARTHRITIS
     Route: 050
     Dates: start: 20060101, end: 20080601
  2. HUMIRA [Suspect]
     Route: 050
     Dates: start: 20080909
  3. METHOTREXATE [Concomitant]
     Indication: RHEUMATOID ARTHRITIS
     Dosage: 6 PILLS Q WEEK
     Route: 048
     Dates: start: 19980101
  4. FOLIC ACID [Concomitant]
     Indication: RHEUMATOID ARTHRITIS
     Route: 048
     Dates: start: 19980101
  5. CELECOXIB [Concomitant]
     Indication: RHEUMATOID ARTHRITIS
     Route: 048
  6. BUPROPION HCL [Concomitant]
     Indication: FIBROMYALGIA
     Route: 048
     Dates: start: 19980101
  7. ESOMEPRAZOLE MAGNESIUM [Concomitant]
     Indication: DRUG USE FOR UNKNOWN INDICATION
     Route: 048
     Dates: start: 20030101
  8. NARINE [Concomitant]
     Indication: ALLERGIC SINUSITIS
     Dosage: STANDARD DOSE - 24 HR
     Route: 048
     Dates: start: 20030101
  9. TRAMADOL HCL [Concomitant]
     Indication: RHEUMATOID ARTHRITIS
     Route: 048
     Dates: start: 20030101
  10. ALBUTEROL SPIROS [Concomitant]
     Indication: ASTHMA
     Route: 055
     Dates: start: 19980101
  11. RANACORT [Concomitant]
     Indication: ASTHMA
     Route: 055
     Dates: start: 20030101
  12. RANACORT [Concomitant]
     Indication: ALLERGIC SINUSITIS
  13. OS-CAL [Concomitant]
     Indication: DRUG USE FOR UNKNOWN INDICATION
     Route: 048
  14. ASCORBIC ACID [Concomitant]
     Indication: DRUG USE FOR UNKNOWN INDICATION
     Route: 048
  15. MAGNESIUM SULFATE [Concomitant]
     Indication: DRUG USE FOR UNKNOWN INDICATION
     Route: 048
  16. VERAPAMIL [Concomitant]
     Indication: DRUG USE FOR UNKNOWN INDICATION
     Dates: start: 20050101

REACTIONS (4)
  - BRAIN NEOPLASM BENIGN [None]
  - HEADACHE [None]
  - JOINT STIFFNESS [None]
  - MIGRAINE [None]
